FAERS Safety Report 21817079 (Version 1)
Quarter: 2023Q1

REPORT INFORMATION
  Report Type: Report from Study
  Country: US (occurrence: US)
  Receive Date: 20230104
  Receipt Date: 20230104
  Transmission Date: 20230417
  Serious: Yes (Life-Threatening, Hospitalization, Disabling, Other)
  Sender: FDA-Public Use
  Company Number: US-002147023-NVSC2023US001383

PATIENT
  Age: 57 Year
  Sex: Male
  Weight: 99.79 kg

DRUGS (1)
  1. ENTRESTO [Suspect]
     Active Substance: SACUBITRIL\VALSARTAN
     Indication: Cardiac failure congestive
     Dosage: 1 DOSAGE FORM, BID
     Route: 048
     Dates: start: 2021

REACTIONS (3)
  - Dyspnoea [Recovering/Resolving]
  - Hypotension [Recovering/Resolving]
  - Product use issue [Not Recovered/Not Resolved]

NARRATIVE: CASE EVENT DATE: 20221127
